FAERS Safety Report 8631540 (Version 2)
Quarter: 2013Q3

REPORT INFORMATION
  Report Type: Report from Study
  Country: US (occurrence: US)
  Receive Date: 20120625
  Receipt Date: 20130719
  Transmission Date: 20140515
  Serious: Yes (Hospitalization)
  Sender: FDA-Public Use
  Company Number: US-BRISTOL-MYERS SQUIBB COMPANY-15573405

PATIENT
  Age: 51 Year
  Sex: Female

DRUGS (4)
  1. GLIMEPIRIDE [Suspect]
     Indication: TYPE 2 DIABETES MELLITUS
  2. PLACEBO [Suspect]
     Indication: TYPE 2 DIABETES MELLITUS
     Dates: start: 20100825
  3. ASPIRIN [Concomitant]
     Dosage: 1DF:LESS THAN 100 MG
  4. EZETIMIBE [Concomitant]

REACTIONS (1)
  - Anaphylactic reaction [Recovered/Resolved]
